FAERS Safety Report 9854577 (Version 3)
Quarter: 2014Q1

REPORT INFORMATION
  Report Type: Spontaneous
  Country: US (occurrence: US)
  Receive Date: 20140130
  Receipt Date: 20140331
  Transmission Date: 20141002
  Serious: No
  Sender: FDA-Public Use
  Company Number: US-BIOGENIDEC-2014BI007710

PATIENT
  Age: 59 Year
  Sex: Female

DRUGS (6)
  1. TECFIDERA [Suspect]
     Indication: MULTIPLE SCLEROSIS
     Route: 048
     Dates: start: 201307
  2. TYSABRI [Concomitant]
  3. AMPYRA [Concomitant]
     Route: 048
     Dates: start: 201111
  4. VESICARE [Concomitant]
  5. VITAMIN D [Concomitant]
  6. SENEKOT [Concomitant]

REACTIONS (9)
  - Pollakiuria [Recovered/Resolved]
  - Flatulence [Recovered/Resolved]
  - Viral infection [Recovered/Resolved]
  - Micturition urgency [Not Recovered/Not Resolved]
  - Troponin increased [Unknown]
  - Escherichia test positive [Unknown]
  - Gastroenteritis viral [Recovered/Resolved]
  - Nausea [Recovered/Resolved]
  - Diarrhoea [Recovered/Resolved]
